FAERS Safety Report 6908504-4 (Version None)
Quarter: 2010Q3

REPORT INFORMATION
  Report Type: 
  Country: None (occurrence: None)
  Receive Date: 20100805
  Receipt Date: 20100726
  Transmission Date: 20110219
  Serious: Yes (Death)
  Sender: FDA-Public Use
  Company Number: JP-PFIZER INC-2010092951

PATIENT
  Age: 54 Year
  Sex: Male
  Weight: 65 kg

DRUGS (15)
  1. SUNITINIB MALATE [Suspect]
     Indication: RENAL CELL CARCINOMA
     Dosage: 50 MG, 1X/DAY
     Route: 048
     Dates: start: 20090522, end: 20090614
  2. NORVASC [Concomitant]
     Dosage: 2.5 MG, 1X/DAY
     Route: 048
  3. MOBIC [Concomitant]
     Dosage: 10 MG, 1X/DAY
     Route: 048
  4. TENORMIN [Concomitant]
     Dosage: 25 MG, 1X/DAY
     Route: 048
  5. TANATRIL [Concomitant]
     Dosage: 1 DF, 1X/DAY
     Route: 048
  6. CODEINE PHOSPHATE [Concomitant]
     Dosage: 2 G, 3X/DAY
     Route: 048
  7. RABEPRAZOLE SODIUM [Concomitant]
     Dosage: 10 MG, 1X/DAY
     Route: 048
     Dates: start: 20090529
  8. VOLTAREN [Concomitant]
     Dosage: 50 MG, AS NEEDED
     Route: 054
  9. DEPAS [Concomitant]
     Dosage: 0.5 MG, 1X/DAY
     Route: 048
     Dates: start: 20090618
  10. BUSCOPAN [Concomitant]
     Dosage: 10 MG, AS NEEDED
     Route: 048
     Dates: start: 20090616
  11. RINDERON [Concomitant]
     Dosage: 1 MG, 1X/DAY
     Route: 048
     Dates: start: 20090603, end: 20090615
  12. RINDERON [Concomitant]
     Dosage: 2 MG, 2X/DAY
     Route: 048
     Dates: start: 20090616
  13. LOPEMIN [Concomitant]
     Dosage: 1 MG, 2X/DAY
     Route: 048
     Dates: start: 20090618, end: 20090620
  14. ALBUMIN TANNATE [Concomitant]
     Dosage: 2 G, X3/DAY
     Route: 048
     Dates: start: 20090616, end: 20090622
  15. BIOFERMIN [Concomitant]
     Dosage: 1 G, 3X/DAY
     Route: 048
     Dates: start: 20090616, end: 20090622

REACTIONS (1)
  - DEATH [None]
